FAERS Safety Report 10981785 (Version 1)
Quarter: 2015Q2

REPORT INFORMATION
  Report Type: Report from Study
  Country: CZ (occurrence: CZ)
  Receive Date: 20150402
  Receipt Date: 20150402
  Transmission Date: 20150821
  Serious: Yes (Hospitalization)
  Sender: FDA-Public Use
  Company Number: CZ-BRISTOL-MYERS SQUIBB COMPANY-20076782

PATIENT
  Age: 44 Year
  Sex: Female
  Weight: 103 kg

DRUGS (20)
  1. NEUROL [Concomitant]
  2. CIPROFLOXACIN. [Concomitant]
     Active Substance: CIPROFLOXACIN
     Dosage: CIPHIN
  3. IPILIMUMAB [Suspect]
     Active Substance: IPILIMUMAB
     Indication: METASTATIC MALIGNANT MELANOMA
     Route: 042
  4. TRAZODONE HYDROCHLORIDE. [Concomitant]
     Active Substance: TRAZODONE HYDROCHLORIDE
  5. NAPROXEN. [Concomitant]
     Active Substance: NAPROXEN
     Dosage: UNK
     Dates: start: 20140113
  6. TRITTICO [Concomitant]
     Active Substance: TRAZODONE HYDROCHLORIDE
  7. PROTHAZINE [Concomitant]
  8. NIVOLUMAB [Suspect]
     Active Substance: NIVOLUMAB
     Indication: METASTATIC MALIGNANT MELANOMA
     Dosage: 1DF:315UNIT NOS  LAST DOSE ON 17JAN14.  INTERRUPTED: 17JAN14
     Route: 042
     Dates: start: 20131219
  9. SOLU-MEDROL [Concomitant]
     Active Substance: METHYLPREDNISOLONE SODIUM SUCCINATE
  10. AMOKSIKLAV [Concomitant]
     Active Substance: AMOXICILLIN\CLAVULANATE POTASSIUM
  11. NOVALGIN [Concomitant]
     Active Substance: METAMIZOLE SODIUM
     Dosage: UNK
     Dates: start: 20140110
  12. LEXAURIN [Concomitant]
     Active Substance: BROMAZEPAM
  13. TORECAN [Concomitant]
     Active Substance: THIETHYLPERAZINE MALATE
  14. HYDROCORTISONE. [Concomitant]
     Active Substance: HYDROCORTISONE
  15. NOVALGIN [Concomitant]
     Active Substance: METAMIZOLE SODIUM
  16. HYPNOGEN [Concomitant]
     Active Substance: ZOLPIDEM\ZOLPIDEM TARTRATE
  17. ALPRAZOLAM. [Concomitant]
     Active Substance: ALPRAZOLAM
  18. PARALEN [Concomitant]
     Active Substance: ACETAMINOPHEN
     Dosage: UNK
     Dates: start: 20140110
  19. KETONAL [Concomitant]
     Active Substance: KETOPROFEN
  20. PREDNISONE. [Concomitant]
     Active Substance: PREDNISONE

REACTIONS (1)
  - Pyrexia [Recovered/Resolved]

NARRATIVE: CASE EVENT DATE: 20140120
